FAERS Safety Report 24910389 (Version 1)
Quarter: 2025Q1

REPORT INFORMATION
  Report Type: Spontaneous
  Country: US (occurrence: None)
  Receive Date: 20250130
  Receipt Date: 20250130
  Transmission Date: 20250408
  Serious: Yes (Other)
  Sender: FDA-CTU
  Company Number: None

PATIENT
  Age: 62 Year
  Sex: Female
  Weight: 75.5 kg

DRUGS (11)
  1. FULVESTRANT [Suspect]
     Active Substance: FULVESTRANT
     Indication: Breast cancer metastatic
     Route: 030
  2. LEVOCETIRIZINE [Concomitant]
     Active Substance: LEVOCETIRIZINE
  3. chlorhexidine (peridex liquid 0.12%) [Concomitant]
  4. FAMOTIDINE [Concomitant]
     Active Substance: FAMOTIDINE
  5. ipratropium nasal 42 mcg [Concomitant]
  6. LOPERAMIDE [Concomitant]
     Active Substance: LOPERAMIDE
  7. ONDANSETRON [Concomitant]
     Active Substance: ONDANSETRON
  8. POTASSIUM CHLORIDE [Concomitant]
     Active Substance: POTASSIUM CHLORIDE
  9. hydrocortisone topical 2.5% [Concomitant]
  10. HYDROXYZINE HYDROCHLORIDE [Concomitant]
     Active Substance: HYDROXYZINE HYDROCHLORIDE
  11. Truqap 200 mg [Concomitant]

REACTIONS (3)
  - Cough [None]
  - Dyspnoea [None]
  - Injection related reaction [None]

NARRATIVE: CASE EVENT DATE: 20250129
